FAERS Safety Report 10252455 (Version 3)
Quarter: 2014Q2

REPORT INFORMATION
  Report Type: Spontaneous
  Country: FR (occurrence: FR)
  Receive Date: 20140623
  Receipt Date: 20140623
  Transmission Date: 20141212
  Serious: Yes (Other)
  Sender: FDA-Public Use
  Company Number: FR-TEVA-476811ISR

PATIENT
  Age: 24 Year
  Sex: Female
  Weight: 75 kg

DRUGS (2)
  1. COPAXONE [Suspect]
     Dosage: 1 DOSAGE FORMS DAILY;
     Route: 058
     Dates: start: 201301, end: 20131030
  2. FOLIC ACID [Concomitant]
     Dosage: 1 DOSAGE FORMS DAILY;
     Route: 048
     Dates: start: 201310, end: 20140415

REACTIONS (2)
  - Abortion induced [Unknown]
  - Exposure during pregnancy [Unknown]
